FAERS Safety Report 5162063-8 (Version None)
Quarter: 2006Q4

REPORT INFORMATION
  Report Type: 
  Country: None (occurrence: None)
  Receive Date: 20061121
  Receipt Date: 20061106
  Transmission Date: 20070319
  Serious: Yes (Other)
  Sender: FDA-Public Use
  Company Number: PHBS2006JP16896

PATIENT
  Age: 77 Year
  Sex: Male

DRUGS (1)
  1. VISUDYNE [Suspect]
     Dates: start: 20050101, end: 20050101

REACTIONS (2)
  - CHOROIDAL NEOVASCULARISATION [None]
  - RETINAL VASCULAR DISORDER [None]
